FAERS Safety Report 7912920-1 (Version None)
Quarter: 2011Q4

REPORT INFORMATION
  Report Type: 
  Country: None (occurrence: None)
  Receive Date: 20111114
  Receipt Date: 20111110
  Transmission Date: 20120403
  Serious: Yes (Hospitalization, Other)
  Sender: FDA-Public Use
  Company Number: JP-PFIZER INC-2011245371

PATIENT
  Age: 66 Year
  Sex: Male

DRUGS (1)
  1. ZOLOFT [Suspect]
     Indication: DEPRESSION
     Dosage: 25MG/DAY
     Dates: start: 20110301, end: 20111101

REACTIONS (2)
  - AGGRESSION [None]
  - GASTRIC ULCER [None]
